FAERS Safety Report 17000739 (Version 3)
Quarter: 2020Q2

REPORT INFORMATION
  Report Type: Spontaneous
  Country: GB (occurrence: GB)
  Receive Date: 20191106
  Receipt Date: 20200520
  Transmission Date: 20200713
  Serious: Yes (Hospitalization)
  Sender: FDA-Public Use
  Company Number: GB-MYLANLABS-2019M1057691

PATIENT
  Sex: Male

DRUGS (3)
  1. CLOZARIL [Suspect]
     Active Substance: CLOZAPINE
     Dosage: 75 MILLIGRAM
     Route: 048
     Dates: end: 20200410
  2. CLOZARIL [Suspect]
     Active Substance: CLOZAPINE
     Dosage: UNK
     Route: 048
     Dates: start: 20200422
  3. CLOZARIL [Suspect]
     Active Substance: CLOZAPINE
     Indication: SCHIZOPHRENIA
     Dosage: UNK
     Route: 048
     Dates: start: 20080910

REACTIONS (3)
  - Antipsychotic drug level increased [Unknown]
  - Schizophrenia [Unknown]
  - Salivary hypersecretion [Unknown]

NARRATIVE: CASE EVENT DATE: 20191009
